FAERS Safety Report 13061472 (Version 1)
Quarter: 2016Q4

REPORT INFORMATION
  Report Type: Spontaneous
  Country: US (occurrence: US)
  Receive Date: 20161226
  Receipt Date: 20161226
  Transmission Date: 20170207
  Serious: No
  Sender: FDA-Public Use
  Company Number: US-NOVEN PHARMACEUTICALS, INC.-US2015001172

PATIENT
  Age: 63 Year
  Sex: Female

DRUGS (2)
  1. MINIVELLE [Suspect]
     Active Substance: ESTRADIOL
     Indication: NIGHT SWEATS
     Dosage: 0.075 MG, UNKNOWN
     Route: 062
     Dates: start: 2015
  2. MINIVELLE [Suspect]
     Active Substance: ESTRADIOL
     Indication: HOT FLUSH
     Dosage: USING A LOWER DOSAGE, UNKNOWN
     Route: 062
     Dates: start: 2015, end: 2015

REACTIONS (3)
  - Musculoskeletal stiffness [Unknown]
  - Hot flush [Recovered/Resolved]
  - Pain in extremity [Unknown]

NARRATIVE: CASE EVENT DATE: 2015
